FAERS Safety Report 11115935 (Version 1)
Quarter: 2015Q2

REPORT INFORMATION
  Report Type: Spontaneous
  Country: US (occurrence: US)
  Receive Date: 20150515
  Receipt Date: 20150515
  Transmission Date: 20150821
  Serious: No
  Sender: FDA-Public Use
  Company Number: US-GLAXOSMITHKLINE-US2015064888

PATIENT
  Age: 59 Year
  Sex: Female

DRUGS (1)
  1. ABREVA [Suspect]
     Active Substance: DOCOSANOL
     Indication: ORAL HERPES
     Dosage: UNK
     Dates: start: 20150510, end: 20150512

REACTIONS (4)
  - Oral herpes [Not Recovered/Not Resolved]
  - Application site erythema [Not Recovered/Not Resolved]
  - Application site irritation [Not Recovered/Not Resolved]
  - Condition aggravated [Not Recovered/Not Resolved]

NARRATIVE: CASE EVENT DATE: 20150511
